FAERS Safety Report 10925940 (Version 4)
Quarter: 2015Q3

REPORT INFORMATION
  Report Type: Spontaneous
  Country: US (occurrence: US)
  Receive Date: 20150318
  Receipt Date: 20150723
  Transmission Date: 20151125
  Serious: Yes (Hospitalization, Other)
  Sender: FDA-Public Use
  Company Number: US-GLAXOSMITHKLINE-US2015GSK016861

PATIENT
  Age: 59 Year
  Sex: Female

DRUGS (6)
  1. SYNTHROID [Concomitant]
     Active Substance: LEVOTHYROXINE SODIUM
  2. NOVOLOG [Concomitant]
     Active Substance: INSULIN ASPART
  3. NEXIUM [Interacting]
     Active Substance: ESOMEPRAZOLE MAGNESIUM
     Indication: INTESTINAL ULCER
  4. VOTRIENT [Suspect]
     Active Substance: PAZOPANIB HYDROCHLORIDE
     Dosage: 400 MG, QD
     Route: 048
     Dates: start: 20150120
  5. VOTRIENT [Suspect]
     Active Substance: PAZOPANIB HYDROCHLORIDE
     Indication: RENAL CANCER
     Dosage: 800 MG, QD
     Route: 048
     Dates: start: 20150120
  6. METFORMIN [Concomitant]
     Active Substance: METFORMIN HYDROCHLORIDE

REACTIONS (10)
  - Alopecia [Unknown]
  - Intestinal ulcer [Unknown]
  - Diarrhoea [Not Recovered/Not Resolved]
  - Blood glucose decreased [Unknown]
  - Fatigue [Unknown]
  - Drug interaction [Unknown]
  - Dysgeusia [Not Recovered/Not Resolved]
  - Dizziness [Unknown]
  - Weight decreased [Unknown]
  - Syncope [Unknown]

NARRATIVE: CASE EVENT DATE: 20150126
